FAERS Safety Report 22703482 (Version 3)
Quarter: 2023Q4

REPORT INFORMATION
  Report Type: Report from Study
  Country: US (occurrence: US)
  Receive Date: 20230713
  Receipt Date: 20231218
  Transmission Date: 20240109
  Serious: No
  Sender: FDA-Public Use
  Company Number: US-ACADIA PHARMACEUTICALS INC.-ACA-2023-TRF-002520

PATIENT
  Age: 23 Year
  Sex: Female

DRUGS (12)
  1. DAYBUE [Suspect]
     Active Substance: TROFINETIDE
     Indication: Rett syndrome
     Dosage: 40 MILLILITER, BID
     Route: 048
     Dates: start: 20230606
  2. DAYBUE [Suspect]
     Active Substance: TROFINETIDE
     Dosage: 25 MILLILITER, BID
     Route: 048
     Dates: start: 20230614
  3. DAYBUE [Suspect]
     Active Substance: TROFINETIDE
     Dosage: 30 MILLILITER, BID
     Route: 048
  4. DAYBUE [Suspect]
     Active Substance: TROFINETIDE
     Dosage: 20 MILLILITER, BID
     Route: 048
  5. CALCIUM [Concomitant]
     Active Substance: CALCIUM
  6. CLARITIN [Concomitant]
     Active Substance: LORATADINE
  7. DANTRIUM [Concomitant]
     Active Substance: DANTROLENE SODIUM
  8. MINOCYCLINE [Concomitant]
     Active Substance: MINOCYCLINE HYDROCHLORIDE
  9. VITAMINS NOS [Concomitant]
     Active Substance: VITAMINS
  10. NORETHINDRONE [Concomitant]
     Active Substance: NORETHINDRONE
  11. SENNA LEAF [Concomitant]
     Active Substance: SENNA LEAF
  12. VIMPAT [Concomitant]
     Active Substance: LACOSAMIDE

REACTIONS (9)
  - Hypersomnia [Unknown]
  - Somnolence [Not Recovered/Not Resolved]
  - Underdose [Unknown]
  - Hypersomnia [Unknown]
  - Somnolence [Unknown]
  - Somnolence [Unknown]
  - Constipation [Unknown]
  - Fatigue [Not Recovered/Not Resolved]
  - Fatigue [Unknown]

NARRATIVE: CASE EVENT DATE: 20230614
